FAERS Safety Report 18296634 (Version 1)
Quarter: 2020Q3

REPORT INFORMATION
  Report Type: Spontaneous
  Country: DE (occurrence: DE)
  Receive Date: 20200922
  Receipt Date: 20200922
  Transmission Date: 20201103
  Serious: Yes (Other)
  Sender: FDA-Public Use
  Company Number: NVSC2020DE255935

PATIENT
  Age: 75 Year
  Sex: Female

DRUGS (1)
  1. BISOHEXAL 2,5 MG FILMTABLETTEN [Suspect]
     Active Substance: BISOPROLOL FUMARATE
     Indication: PRODUCT USED FOR UNKNOWN INDICATION
     Dosage: 2.5 MG
     Route: 065
     Dates: start: 20200916

REACTIONS (1)
  - Arrhythmia [Not Recovered/Not Resolved]
